FAERS Safety Report 16890533 (Version 1)
Quarter: 2019Q4

REPORT INFORMATION
  Report Type: Spontaneous
  Country: US (occurrence: US)
  Receive Date: 20191005
  Receipt Date: 20191005
  Transmission Date: 20200122
  Serious: No
  Sender: FDA-Public Use
  Company Number: None

PATIENT
  Age: 61 Year
  Sex: Male
  Weight: 82.4 kg

DRUGS (1)
  1. ACTIVASE [Suspect]
     Active Substance: ALTEPLASE
     Indication: CEREBROVASCULAR ACCIDENT
     Route: 041
     Dates: start: 20191005, end: 20191005

REACTIONS (3)
  - Infusion related reaction [None]
  - Lip swelling [None]
  - Paraesthesia oral [None]

NARRATIVE: CASE EVENT DATE: 20191005
